FAERS Safety Report 9030162 (Version 1)
Quarter: 2013Q1

REPORT INFORMATION
  Report Type: Spontaneous
  Country: BR (occurrence: BR)
  Receive Date: 20130125
  Receipt Date: 20130125
  Transmission Date: 20140127
  Serious: Yes (Life-Threatening, Hospitalization, Other)
  Sender: FDA-Public Use
  Company Number: BR-BRISTOL-MYERS SQUIBB COMPANY-17300344

PATIENT
  Age: 75 Year
  Sex: Female
  Weight: 70 kg

DRUGS (3)
  1. APROZIDE [Suspect]
     Indication: HYPERTENSION
     Dosage: 300 MG TABS 1 TAB AT NOON
  2. NEBILET [Concomitant]
     Indication: HYPERTENSION
     Dosage: 1 TAB IN MORN
  3. ZANIDIP [Concomitant]
     Indication: HYPERTENSION
     Dosage: 1 TAB AT NIGHT

REACTIONS (5)
  - Intracranial haematoma [Recovered/Resolved]
  - Glaucoma [Unknown]
  - Retinal vascular thrombosis [Unknown]
  - Choroidal detachment [Unknown]
  - Fall [Unknown]
